FAERS Safety Report 17976255 (Version 9)
Quarter: 2021Q4

REPORT INFORMATION
  Report Type: Report from Study
  Country: FR (occurrence: FR)
  Receive Date: 20200702
  Receipt Date: 20211222
  Transmission Date: 20220303
  Serious: Yes (Hospitalization)
  Sender: FDA-Public Use
  Company Number: FR-EXELIXIS-XL18420030872

PATIENT
  Age: 70 Year
  Sex: Female
  Weight: 75 kg

DRUGS (13)
  1. CABOZANTINIB [Suspect]
     Active Substance: CABOZANTINIB
     Indication: Thyroid cancer
     Dosage: 60 MG, QD
     Route: 048
     Dates: start: 20200131
  2. CABOZANTINIB [Suspect]
     Active Substance: CABOZANTINIB
     Dosage: 40 MG, QD
     Route: 048
     Dates: end: 20200622
  3. LEVOTHYROXINE [Concomitant]
     Active Substance: LEVOTHYROXINE
  4. CALCIUM [Concomitant]
     Active Substance: CALCIUM
  5. LANSOPRAZOLE [Concomitant]
     Active Substance: LANSOPRAZOLE
  6. XGEVA [Concomitant]
     Active Substance: DENOSUMAB
  7. PRAMIPEXOLE [Concomitant]
     Active Substance: PRAMIPEXOLE
  8. DOLIPRANE [Concomitant]
     Active Substance: ACETAMINOPHEN
  9. FORTIMEL COMPACT PROTEIN [Concomitant]
  10. RASAGILINE ACCORD [Concomitant]
  11. PIRIBEDIL [Concomitant]
     Active Substance: PIRIBEDIL
  12. MAGNESIUM [Concomitant]
     Active Substance: MAGNESIUM
  13. ALPHA VIT [Concomitant]

REACTIONS (1)
  - Laryngeal necrosis [Recovered/Resolved]

NARRATIVE: CASE EVENT DATE: 20200622
